FAERS Safety Report 7549381-0 (Version None)
Quarter: 2011Q2

REPORT INFORMATION
  Report Type: 
  Country: None (occurrence: None)
  Receive Date: 20110615
  Receipt Date: 20031219
  Transmission Date: 20111010
  Serious: Yes (Hospitalization)
  Sender: FDA-Public Use
  Company Number: PHHO2003JP14947

PATIENT
  Sex: Male
  Weight: 137 kg

DRUGS (4)
  1. AMLODIPINE [Suspect]
     Indication: HYPERTENSION
     Dosage: 5 MG/ DAY
     Route: 048
     Dates: start: 20030711, end: 20030726
  2. ALOSITOL [Concomitant]
     Dates: start: 20030516, end: 20030711
  3. DIOVAN [Suspect]
     Indication: HYPERTENSION
     Dosage: 80 MG, PER DAY
     Route: 048
     Dates: start: 20030517, end: 20030726
  4. URINORM [Suspect]
     Dosage: 50 MG, PER DAY
     Route: 048
     Dates: start: 20030613, end: 20031010

REACTIONS (1)
  - CARDIAC FAILURE [None]
